FAERS Safety Report 6452816-8 (Version None)
Quarter: 2009Q4

REPORT INFORMATION
  Report Type: 
  Country: None (occurrence: None)
  Receive Date: 20091117
  Receipt Date: 20091103
  Transmission Date: 20100525
  Serious: Yes (Hospitalization)
  Sender: FDA-Public Use
  Company Number: WAES 0910USA02655

PATIENT
  Age: 45 Year
  Sex: Female

DRUGS (4)
  1. CAP VORINOSTAT [Suspect]
     Indication: MULTIPLE MYELOMA
     Dosage: 400 MG/ PO
     Route: 048
     Dates: start: 20090711, end: 20091015
  2. CAP VORINOSTAT [Suspect]
     Indication: MULTIPLE MYELOMA
     Dosage: 400 MG/ PO
     Route: 048
     Dates: start: 20091019
  3. INJ BORTEZOMIB [Suspect]
     Indication: MULTIPLE MYELOMA
     Dosage: 1.9 MG/ IV
     Dates: start: 20090711, end: 20091013
  4. INJ BORTEZOMIB [Suspect]
     Indication: MULTIPLE MYELOMA
     Dosage: 1.9 MG/ IV
     Dates: start: 20091020

REACTIONS (1)
  - DIARRHOEA [None]
